FAERS Safety Report 9758351 (Version 2)
Quarter: 2013Q4

REPORT INFORMATION
  Report Type: Spontaneous
  Country: US (occurrence: US)
  Receive Date: 20131216
  Receipt Date: 20131216
  Transmission Date: 20140711
  Serious: Yes (Other)
  Sender: FDA-Public Use
  Company Number: US-SHIRE-ALL1-2013-06804

PATIENT
  Sex: Female
  Weight: 72.6 kg

DRUGS (8)
  1. CARBATROL EXTENDED RELEASE [Suspect]
     Indication: EPILEPSY
     Dosage: 600 MG, 2X/DAY:BID (2/300MG CAPSULES)
     Route: 048
     Dates: start: 201311
  2. CARBATROL EXTENDED RELEASE [Suspect]
     Dosage: 600 MG, 2X/DAY:BID
     Route: 048
  3. 433 (CARBAMAZEPINE) [Suspect]
     Indication: EPILEPSY
     Dosage: 600 MG (TWO 300 MG), 2X/DAY:BID
     Route: 048
     Dates: start: 20130827, end: 20130926
  4. 433 (CARBAMAZEPINE) [Suspect]
     Dosage: 600 MG (TWO 300 MG), 1X/DAY:QD (AM)
     Route: 048
     Dates: start: 20130926, end: 201311
  5. 433 (CARBAMAZEPINE) [Suspect]
     Dosage: 900 MG (THREE 300 MG), 1X/DAY:QD (PM)
     Route: 048
     Dates: start: 20130926, end: 201311
  6. PHENOBARBITAL [Concomitant]
     Indication: CONVULSION
     Dosage: 60 MG (TWO 30 MG), 1X/DAY:QD (AM)
     Route: 048
  7. PHENOBARBITAL [Concomitant]
     Indication: EPILEPSY
     Dosage: 100 MG, 1X/DAY:QD (PM)
     Route: 048
  8. PREDNISONE [Concomitant]
     Indication: SYSTEMIC LUPUS ERYTHEMATOSUS
     Dosage: UNK, AS REQ^D
     Route: 048

REACTIONS (4)
  - Drug level below therapeutic [Not Recovered/Not Resolved]
  - Blood sodium decreased [Not Recovered/Not Resolved]
  - Aura [Recovered/Resolved]
  - Expired drug administered [Not Recovered/Not Resolved]
